FAERS Safety Report 18527807 (Version 1)
Quarter: 2020Q4

REPORT INFORMATION
  Report Type: Spontaneous
  Country: US (occurrence: US)
  Receive Date: 20201120
  Receipt Date: 20201120
  Transmission Date: 20210114
  Serious: Yes (Other)
  Sender: FDA-Public Use
  Company Number: US-009507513-2011USA008100

PATIENT
  Age: 78 Year
  Sex: Female
  Weight: 73 kg

DRUGS (13)
  1. PRINIVIL [Suspect]
     Active Substance: LISINOPRIL
     Dates: end: 20080805
  2. ALUMINUM HYDROXIDE (+) MAGNESIUM HYDROXIDE [Concomitant]
     Active Substance: ALUMINUM HYDROXIDE\MAGNESIUM HYDROXIDE
  3. FISH OIL [Concomitant]
     Active Substance: FISH OIL
  4. SPIRIVA [Suspect]
     Active Substance: TIOTROPIUM BROMIDE MONOHYDRATE
     Indication: DYSPNOEA
     Dosage: 18 MICROGRAM
     Dates: start: 200708, end: 20080815
  5. ASPIRIN. [Concomitant]
     Active Substance: ASPIRIN
  6. GARLIC. [Concomitant]
     Active Substance: GARLIC
  7. PEPCID [Concomitant]
     Active Substance: FAMOTIDINE
  8. LIPITOR [Suspect]
     Active Substance: ATORVASTATIN CALCIUM
     Indication: BLOOD CHOLESTEROL INCREASED
     Dosage: 80 MILLIGRAM, QD
     Dates: start: 20080731, end: 20080805
  9. METFORMIN [Concomitant]
     Active Substance: METFORMIN HYDROCHLORIDE
  10. FLAXSEED [Concomitant]
     Active Substance: FLAX SEED
  11. CINNAMON. [Concomitant]
     Active Substance: CINNAMON
  12. VITAMINS (UNSPECIFIED) [Concomitant]
     Active Substance: VITAMINS
  13. ATENOLOL. [Concomitant]
     Active Substance: ATENOLOL

REACTIONS (14)
  - Gait disturbance [Not Recovered/Not Resolved]
  - Rash [Recovered/Resolved]
  - Musculoskeletal stiffness [Not Recovered/Not Resolved]
  - Urticaria [Recovered/Resolved]
  - Dyspnoea [Recovered/Resolved]
  - Peripheral swelling [Not Recovered/Not Resolved]
  - Dysphonia [Not Recovered/Not Resolved]
  - Ocular hyperaemia [Recovered/Resolved]
  - Swelling [Recovered/Resolved]
  - Balance disorder [Not Recovered/Not Resolved]
  - Impaired driving ability [Unknown]
  - Weight decreased [Unknown]
  - Erythema [Not Recovered/Not Resolved]
  - Joint stiffness [Not Recovered/Not Resolved]

NARRATIVE: CASE EVENT DATE: 20080728
